FAERS Safety Report 5052627-4 (Version None)
Quarter: 2006Q2

REPORT INFORMATION
  Report Type: 
  Country: None (occurrence: None)
  Receive Date: 20060614
  Receipt Date: 20060317
  Transmission Date: 20061013
  Serious: Yes (Other)
  Sender: FDA-Public Use
  Company Number: 441141

PATIENT
  Age: 63 Year
  Sex: Female

DRUGS (12)
  1. BONIVA [Suspect]
     Indication: OSTEOPOROSIS
     Dosage: 150 MG 1 PER MONTH ORAL
     Route: 048
     Dates: end: 20060215
  2. 1 CONCOMITANT DRUG (GENERIC UNKNOWN) [Concomitant]
  3. PROTONIX [Concomitant]
  4. VALIUM [Concomitant]
  5. REMERON [Concomitant]
  6. PRIMIDONE [Concomitant]
  7. ALBUTEROL [Concomitant]
  8. DIAMOX [Concomitant]
  9. REGLAN [Concomitant]
  10. PREDNISONE TAB [Concomitant]
  11. VERAPAMIL [Concomitant]
  12. OXYGEN (OXYGEN) [Concomitant]

REACTIONS (3)
  - ARTHRALGIA [None]
  - GASTROOESOPHAGEAL REFLUX DISEASE [None]
  - NAUSEA [None]
